FAERS Safety Report 7922716 (Version 3)
Quarter: 2012Q4

REPORT INFORMATION
  Report Type: 
  Country: US (occurrence: US)
  Receive Date: 20110429
  Receipt Date: 20121102
  Transmission Date: 20130627
  Serious: No
  Sender: FDA-Public Use
  Company Number: US-ASTRAZENECA-2009SE22535

PATIENT
  Age: 55 Year
  Sex: Female

DRUGS (3)
  1. NEXIUM [Suspect]
     Route: 048
  2. PRILOSEC [Suspect]
     Route: 048
  3. PREVACID [Concomitant]

REACTIONS (8)
  - Hernia [Unknown]
  - Gastric disorder [Unknown]
  - Aphagia [Unknown]
  - Dyspepsia [Unknown]
  - Insomnia [Unknown]
  - Abdominal pain upper [Unknown]
  - Intentional drug misuse [Unknown]
  - Drug ineffective [Unknown]
